FAERS Safety Report 7107214-0 (Version None)
Quarter: 2010Q4

REPORT INFORMATION
  Report Type: 
  Country: None (occurrence: None)
  Receive Date: 20101116
  Receipt Date: 20101019
  Transmission Date: 20110411
  Serious: No
  Sender: FDA-Public Use
  Company Number: US-ABBOTT-10P-163-0679326-00

PATIENT
  Sex: Female
  Weight: 103.97 kg

DRUGS (7)
  1. SIMCOR [Suspect]
     Indication: ARTERIOSCLEROSIS CORONARY ARTERY
     Dosage: 500/20MG AT BEDTIME
     Dates: start: 20101012, end: 20101014
  2. FUROSEMIDE [Concomitant]
     Indication: PRODUCT USED FOR UNKNOWN INDICATION
  3. METOLAZONE [Concomitant]
     Indication: PRODUCT USED FOR UNKNOWN INDICATION
  4. METFORMIN [Concomitant]
     Indication: PRODUCT USED FOR UNKNOWN INDICATION
  5. LABETALOL HCL [Concomitant]
     Indication: PRODUCT USED FOR UNKNOWN INDICATION
  6. RIVADIA [Concomitant]
     Indication: PRODUCT USED FOR UNKNOWN INDICATION
  7. AZOR [Concomitant]
     Indication: PRODUCT USED FOR UNKNOWN INDICATION

REACTIONS (3)
  - FLUSHING [None]
  - LOSS OF CONSCIOUSNESS [None]
  - PARAESTHESIA [None]
